FAERS Safety Report 24705466 (Version 1)
Quarter: 2024Q4

REPORT INFORMATION
  Report Type: Spontaneous
  Country: US (occurrence: None)
  Receive Date: 20241205
  Receipt Date: 20241205
  Transmission Date: 20250114
  Serious: Yes (Death)
  Sender: Public
  Company Number: None

PATIENT
  Age: 58 Year
  Sex: Male

DRUGS (1)
  1. BOTOX [Suspect]
     Active Substance: ONABOTULINUMTOXINA
     Indication: Abscess of salivary gland
     Dosage: INJECT 50  UNITS INTO TH GLNDS EVERY 6 WEEKS? ?
     Route: 050

REACTIONS (1)
  - Death [None]
